FAERS Safety Report 21819720 (Version 2)
Quarter: 2023Q2

REPORT INFORMATION
  Report Type: Other
  Country: CN (occurrence: CN)
  Receive Date: 20230104
  Receipt Date: 20230405
  Transmission Date: 20230722
  Serious: Yes (Death)
  Sender: FDA-Public Use
  Company Number: CN-CSTONE PHARMACEUTICALS (SUZHOU) CO., LTD.-2022CN02034

PATIENT
  Age: 40 Year
  Sex: Male

DRUGS (2)
  1. AYVAKIT [Suspect]
     Active Substance: AVAPRITINIB
     Indication: Gastrointestinal stromal tumour
     Dosage: 200 MILLIGRAM, UNKNOWN
     Route: 048
     Dates: start: 20221119
  2. AYVAKIT [Suspect]
     Active Substance: AVAPRITINIB
     Dosage: UNK UNK, UNKNOWN

REACTIONS (3)
  - Death [Fatal]
  - Periorbital oedema [Not Recovered/Not Resolved]
  - Oedema peripheral [Not Recovered/Not Resolved]

NARRATIVE: CASE EVENT DATE: 20221209
